FAERS Safety Report 7939237-3 (Version None)
Quarter: 2011Q4

REPORT INFORMATION
  Report Type: 
  Country: None (occurrence: None)
  Receive Date: 20111124
  Receipt Date: 20111121
  Transmission Date: 20120403
  Serious: Yes (Other)
  Sender: FDA-Public Use
  Company Number: TW-SANOFI-AVENTIS-2011SA076438

PATIENT
  Age: 45 Year
  Sex: Male

DRUGS (6)
  1. DEXAMETHASONE [Concomitant]
     Indication: PREMEDICATION
     Dates: start: 20100801
  2. OXALIPLATIN [Suspect]
     Dosage: INFUSION TIME EXTENDED UPTO 6 H
     Route: 065
     Dates: start: 20100801, end: 20100801
  3. FLUOROURACIL [Concomitant]
     Dosage: CONTINUOUS 46-HOUR INFUSION
     Dates: start: 20100801
  4. OXALIPLATIN [Suspect]
     Dosage: INFUSION; ON DAY 1
     Route: 065
     Dates: start: 20100801, end: 20100801
  5. LEUCOVORIN CALCIUM [Concomitant]
     Dosage: ON DAY 1
     Dates: start: 20100801
  6. GRANISETRON [Concomitant]
     Indication: PREMEDICATION
     Dates: start: 20100801

REACTIONS (9)
  - KOUNIS SYNDROME [None]
  - CONFUSIONAL STATE [None]
  - ELECTROCARDIOGRAM ST SEGMENT ELEVATION [None]
  - DYSPNOEA [None]
  - HYPERHIDROSIS [None]
  - CHEST DISCOMFORT [None]
  - PRINZMETAL ANGINA [None]
  - ELECTROCARDIOGRAM T WAVE PEAKED [None]
  - HYPOTENSION [None]
